FAERS Safety Report 12477213 (Version 1)
Quarter: 2016Q2

REPORT INFORMATION
  Report Type: Spontaneous
  Country: GB (occurrence: GB)
  Receive Date: 20160617
  Receipt Date: 20160617
  Transmission Date: 20160815
  Serious: Yes (Other)
  Sender: FDA-Public Use
  Company Number: GB-WATSON-2016-12369

PATIENT
  Age: 28 Year
  Sex: Female
  Weight: 74.38 kg

DRUGS (2)
  1. LORATADINE (UNKNOWN) [Suspect]
     Active Substance: LORATADINE
     Indication: SEASONAL ALLERGY
     Dosage: 10 MG, UNK
     Route: 048
     Dates: start: 20160524, end: 20160524
  2. CERAZETTE                          /00754001/ [Concomitant]
     Active Substance: DESOGESTREL
     Indication: PRODUCT USED FOR UNKNOWN INDICATION
     Dosage: UNK
     Route: 065

REACTIONS (9)
  - Panic attack [Recovered/Resolved with Sequelae]
  - Tremor [Unknown]
  - Fatigue [Unknown]
  - Palpitations [Recovered/Resolved]
  - Syncope [Recovered/Resolved]
  - Migraine with aura [Not Recovered/Not Resolved]
  - Limb discomfort [Unknown]
  - Hyperhidrosis [Recovered/Resolved with Sequelae]
  - Dyspnoea [Recovered/Resolved]

NARRATIVE: CASE EVENT DATE: 20160524
